FAERS Safety Report 5222865-6 (Version None)
Quarter: 2007Q1

REPORT INFORMATION
  Report Type: 
  Country: None (occurrence: None)
  Receive Date: 20070129
  Receipt Date: 20061204
  Transmission Date: 20070707
  Serious: No
  Sender: FDA-Public Use
  Company Number: US-GLAXOSMITHKLINE-A0624295A

PATIENT
  Age: 34 Year
  Sex: Female
  Weight: 73.2 kg

DRUGS (5)
  1. LEXIVA [Suspect]
     Indication: HIV INFECTION
     Dosage: 1400MG TWICE PER DAY
     Dates: start: 20050801, end: 20061016
  2. TRUVADA [Suspect]
     Dates: start: 20060518
  3. FLUOXETINE [Suspect]
  4. RISPERDAL [Suspect]
  5. CELEBREX [Concomitant]
     Dates: start: 20060718

REACTIONS (2)
  - DRUG INTERACTION [None]
  - PARAESTHESIA ORAL [None]
